FAERS Safety Report 12943136 (Version 1)
Quarter: 2016Q4

REPORT INFORMATION
  Report Type: Report from Study
  Country: US (occurrence: US)
  Receive Date: 20161115
  Receipt Date: 20161115
  Transmission Date: 20170207
  Serious: Yes (Death, Hospitalization, Other)
  Sender: FDA-Public Use
  Company Number: US-PFIZER INC-2016522408

PATIENT
  Sex: Female

DRUGS (7)
  1. GABAPENTIN. [Suspect]
     Active Substance: GABAPENTIN
     Indication: PAIN
     Dosage: UNK UNK, 1X/DAY (QD)
     Route: 064
     Dates: start: 20150515, end: 20160212
  2. SUBOXONE [Suspect]
     Active Substance: BUPRENORPHINE HYDROCHLORIDE\NALOXONE HYDROCHLORIDE
     Indication: DRUG DEPENDENCE
     Dosage: 10 MG, DAILY
     Route: 064
     Dates: start: 201508, end: 2015
  3. BUPRENORPHINE. [Suspect]
     Active Substance: BUPRENORPHINE
     Indication: DRUG DEPENDENCE
     Dosage: VARIOUS DOSES
     Route: 064
     Dates: start: 2015, end: 20160212
  4. NICOTINE. [Suspect]
     Active Substance: NICOTINE
     Indication: NICOTINE DEPENDENCE
     Dosage: 40 CIGARETTES, DAILY
     Route: 064
     Dates: start: 20150515, end: 20160212
  5. VISTARIL [Suspect]
     Active Substance: HYDROXYZINE PAMOATE
     Indication: ANXIETY
     Dosage: 50 MG, 2X/DAY
     Route: 064
     Dates: start: 20150515, end: 20160212
  6. LEXAPRO [Suspect]
     Active Substance: ESCITALOPRAM OXALATE
     Indication: DEPRESSION
     Dosage: 20 MG, 1X/DAY (QD)
     Route: 064
     Dates: start: 20150515, end: 20160212
  7. BUPRENORPHINE. [Suspect]
     Active Substance: BUPRENORPHINE
     Indication: DRUG DEPENDENCE
     Dosage: 10 MG, 1X/DAY (QD)
     Route: 064
     Dates: start: 201508, end: 2015

REACTIONS (7)
  - Agitation neonatal [Recovered/Resolved]
  - Maternal exposure during pregnancy [Recovered/Resolved]
  - Poor feeding infant [Recovered/Resolved]
  - Drug withdrawal syndrome neonatal [Recovered/Resolved]
  - Neonatal aspiration [Fatal]
  - Irritability [Recovered/Resolved]
  - Oral candidiasis [Recovered/Resolved]

NARRATIVE: CASE EVENT DATE: 201508
